FAERS Safety Report 5695342-6 (Version None)
Quarter: 2008Q2

REPORT INFORMATION
  Report Type: 
  Country: None (occurrence: None)
  Receive Date: 20080404
  Receipt Date: 20080328
  Transmission Date: 20081010
  Serious: Yes (Other)
  Sender: FDA-Public Use
  Company Number: JP-MERCK-0803USA00634

PATIENT
  Age: 86 Year
  Sex: Female

DRUGS (14)
  1. FOSAMAX [Suspect]
     Indication: OSTEOPOROSIS
     Route: 048
     Dates: end: 20080220
  2. ASPIRIN [Concomitant]
     Route: 048
     Dates: end: 20080220
  3. SIGMART [Concomitant]
     Route: 048
  4. ITOROL [Concomitant]
     Route: 048
  5. MUCOSTA [Concomitant]
     Route: 048
  6. MICARDIS [Concomitant]
     Route: 048
  7. NATRIX [Concomitant]
     Route: 048
  8. ZOCOR [Concomitant]
     Route: 048
  9. VITAMEDIN [Concomitant]
     Route: 048
  10. VOLTAREN [Concomitant]
     Route: 048
  11. SM POWDER [Concomitant]
     Route: 048
  12. NITROPEN [Concomitant]
     Route: 060
  13. MOBIC [Concomitant]
     Route: 048
  14. KETOPROFEN [Concomitant]
     Route: 061

REACTIONS (2)
  - IMPAIRED HEALING [None]
  - OSTEITIS [None]
